FAERS Safety Report 5067483-8 (Version None)
Quarter: 2006Q3

REPORT INFORMATION
  Report Type: 
  Country: None (occurrence: None)
  Receive Date: 20060731
  Receipt Date: 20060714
  Transmission Date: 20061208
  Serious: Yes (Hospitalization)
  Sender: FDA-Public Use
  Company Number: US200603004325

PATIENT
  Age: 52 Year
  Sex: Male
  Weight: 90.7 kg

DRUGS (2)
  1. ZYPREXA [Suspect]
     Dates: start: 19991101, end: 20030401
  2. ATENOLOL [Concomitant]

REACTIONS (2)
  - DIABETES MELLITUS [None]
  - MYOCARDIAL ISCHAEMIA [None]
